FAERS Safety Report 24847249 (Version 1)
Quarter: 2025Q1

REPORT INFORMATION
  Report Type: Spontaneous
  Country: US (occurrence: US)
  Receive Date: 20250116
  Receipt Date: 20250116
  Transmission Date: 20250409
  Serious: Yes (Other)
  Sender: STRIDES
  Company Number: US-STRIDES PHARMA UK LTD.-2024SP012951

PATIENT

DRUGS (4)
  1. PREDNISOLONE [Suspect]
     Active Substance: PREDNISOLONE
     Indication: Mouth ulceration
     Route: 065
  2. DOXYCYCLINE [Suspect]
     Active Substance: DOXYCYCLINE
     Indication: Sinusitis
     Route: 065
  3. COLCHICINE [Suspect]
     Active Substance: COLCHICINE
     Indication: Pericarditis
     Route: 065
  4. FLUCONAZOLE [Concomitant]
     Active Substance: FLUCONAZOLE
     Indication: Mouth ulceration
     Route: 065

REACTIONS (3)
  - Pulmonary histoplasmosis [Recovered/Resolved]
  - Drug ineffective [Unknown]
  - Off label use [Unknown]
